FAERS Safety Report 9563083 (Version 1)
Quarter: 2013Q3

REPORT INFORMATION
  Report Type: Spontaneous
  Country: US (occurrence: US)
  Receive Date: 20130927
  Receipt Date: 20130927
  Transmission Date: 20140515
  Serious: No
  Sender: FDA-Public Use
  Company Number: US-BRISTOL-MYERS SQUIBB COMPANY-17032327

PATIENT
  Sex: 0

DRUGS (1)
  1. ONGLYZA TABS [Suspect]

REACTIONS (1)
  - Platelet count decreased [Unknown]
